FAERS Safety Report 8140645-9 (Version None)
Quarter: 2012Q1

REPORT INFORMATION
  Report Type: 
  Country: None (occurrence: None)
  Receive Date: 20120216
  Receipt Date: 20120123
  Transmission Date: 20120608
  Serious: No
  Sender: FDA-Public Use
  Company Number: US-ROXANE LABORATORIES, INC.-2012-RO-00527RO

PATIENT
  Age: 58 Year
  Sex: Female

DRUGS (1)
  1. FLECAINIDE ACETATE [Suspect]
     Indication: SUPRAVENTRICULAR TACHYCARDIA
     Dosage: 200 MG
     Route: 048
     Dates: start: 20111001, end: 20120113

REACTIONS (4)
  - DIZZINESS [None]
  - HEADACHE [None]
  - MUSCLE STRAIN [None]
  - MALAISE [None]
